FAERS Safety Report 17920485 (Version 3)
Quarter: 2020Q4

REPORT INFORMATION
  Report Type: Report from Study
  Country: DE (occurrence: DE)
  Receive Date: 20200621
  Receipt Date: 20201213
  Transmission Date: 20210113
  Serious: Yes (Death, Life-Threatening, Hospitalization)
  Sender: FDA-Public Use
  Company Number: DE-UCBSA-2020022639

PATIENT
  Age: 49 Year
  Sex: Male
  Weight: 118 kg

DRUGS (31)
  1. COSENTYX [Suspect]
     Active Substance: SECUKINUMAB
     Dosage: 300 MILLIGRAM, MONTHLY (QM)
     Route: 058
     Dates: end: 20181107
  2. PANTOPRAZOLE [Concomitant]
     Active Substance: PANTOPRAZOLE
     Indication: DYSPEPSIA
     Dosage: 400 MILLIGRAM, ONCE DAILY (QD)
     Dates: end: 20181107
  3. COSENTYX [Suspect]
     Active Substance: SECUKINUMAB
     Indication: PSORIATIC ARTHROPATHY
     Dosage: 300 MILLIGRAM, WEEKLY (QW)
     Route: 058
     Dates: start: 20180207
  4. SPIRONOLACTONE. [Concomitant]
     Active Substance: SPIRONOLACTONE
     Indication: HYPERTENSION
     Dosage: 50 MILLIGRAM, 2X/DAY (BID)
     Dates: end: 20181107
  5. TORASEMIDE [Concomitant]
     Active Substance: TORSEMIDE
     Indication: HYPERTENSION
     Dosage: 10 MILLIGRAM, ONCE DAILY (QD)
     Dates: end: 20181107
  6. TAVEGIL [CLEMASTINE] [Concomitant]
     Active Substance: CLEMASTINE
     Indication: PRURITUS
     Dosage: 1 MILLIGRAM, ONCE DAILY (QD)
     Dates: end: 20181107
  7. FOLSAN [Concomitant]
     Active Substance: FOLIC ACID
     Indication: PRODUCT USED FOR UNKNOWN INDICATION
  8. CERTOLIZUMAB PEGOL [Suspect]
     Active Substance: CERTOLIZUMAB PEGOL
     Indication: PSORIASIS
     Dosage: 200 MILLIGRAM, EV 2 WEEKS(QOW)
     Route: 058
     Dates: start: 20131217, end: 20150227
  9. TREMFYA [Concomitant]
     Active Substance: GUSELKUMAB
     Indication: PSORIASIS
     Dosage: 200 MILLIGRAM
     Route: 058
     Dates: start: 20180731, end: 20181026
  10. TREMFYA [Concomitant]
     Active Substance: GUSELKUMAB
     Dosage: 100 UNK
     Route: 058
     Dates: start: 2018, end: 201811
  11. TAVOR (LORAZEPAM) [Concomitant]
     Active Substance: LORAZEPAM
     Indication: CLAUSTROPHOBIA
     Dosage: 2.5 MILLIGRAM
     Dates: start: 20180713
  12. LACTULOSE. [Concomitant]
     Active Substance: LACTULOSE
     Indication: PRODUCT USED FOR UNKNOWN INDICATION
     Dosage: UNK
  13. AMINEURIN [Concomitant]
     Active Substance: AMITRIPTYLINE HYDROCHLORIDE
     Indication: PRODUCT USED FOR UNKNOWN INDICATION
     Dosage: UNK
  14. AMITRIPTYLINE [Concomitant]
     Active Substance: AMITRIPTYLINE
     Indication: DEPRESSION
     Dosage: 75 MILLIGRAM, 2X/DAY (BID)
     Dates: end: 20181107
  15. CITALOPRAM [Concomitant]
     Active Substance: CITALOPRAM HYDROBROMIDE
     Indication: PRODUCT USED FOR UNKNOWN INDICATION
     Dosage: 10 MILLIGRAM, ONCE DAILY (QD)
     Dates: end: 20181107
  16. FOLIC ACID. [Concomitant]
     Active Substance: FOLIC ACID
     Indication: FOLATE DEFICIENCY
     Dosage: 5 MILLIGRAM, ONCE DAILY (QD)
     Dates: end: 20181107
  17. ORTOTON [ETILEFRINE HYDROCHLORIDE] [Concomitant]
     Indication: PRODUCT USED FOR UNKNOWN INDICATION
     Dosage: UNK
  18. COSENTYX [Suspect]
     Active Substance: SECUKINUMAB
     Indication: PSORIASIS
     Dosage: 300 MILLIGRAM
     Route: 058
     Dates: start: 20150610, end: 20151201
  19. RIFAXIMAX [Concomitant]
     Indication: NONALCOHOLIC FATTY LIVER DISEASE
     Dosage: 550 MILLIGRAM
     Dates: end: 20181107
  20. BIFITERAL [Concomitant]
     Active Substance: LACTULOSE
     Indication: PRODUCT USED FOR UNKNOWN INDICATION
  21. CERTOLIZUMAB PEGOL [Suspect]
     Active Substance: CERTOLIZUMAB PEGOL
     Indication: PSORIATIC ARTHROPATHY
  22. IRON [Concomitant]
     Active Substance: IRON
     Indication: ANAEMIA
     Dosage: 100 MILLIGRAM, ONCE DAILY (QD)
     Dates: end: 20181107
  23. XIFAXAN [Concomitant]
     Active Substance: RIFAXIMIN
     Indication: PRODUCT USED FOR UNKNOWN INDICATION
     Dosage: UNK
  24. FERRO-SANOL DUODENAL [Concomitant]
     Active Substance: FERROUS GLYCINE SULFATE
     Indication: PRODUCT USED FOR UNKNOWN INDICATION
  25. MTX [METHOTREXATE] [Concomitant]
     Active Substance: METHOTREXATE SODIUM
     Indication: PRODUCT USED FOR UNKNOWN INDICATION
     Dosage: UNK
  26. RAMIPRIL. [Concomitant]
     Active Substance: RAMIPRIL
     Indication: HYPERTENSION
     Dosage: 25 MILLIGRAM, ONCE DAILY (QD)
     Dates: end: 20181107
  27. ALDACTONE [Concomitant]
     Active Substance: SPIRONOLACTONE
     Indication: PORTAL HYPERTENSION
     Dosage: 50 MILLIGRAM, 2X/DAY (BID)
     Dates: end: 20181107
  28. FEXOFENADINE HYDROCHLORIDE. [Concomitant]
     Active Substance: FEXOFENADINE HYDROCHLORIDE
     Indication: PRODUCT USED FOR UNKNOWN INDICATION
  29. VITAMIN B COMPLEX WITH VITAMIN C [ASCORBIC ACID;CYANOCOBALAMIN;FOLIC A [Concomitant]
     Indication: PRODUCT USED FOR UNKNOWN INDICATION
  30. INSULIN [Concomitant]
     Active Substance: INSULIN NOS
     Indication: DIABETES MELLITUS
     Dosage: UNK
  31. DREISAVIT N [Concomitant]
     Indication: PRODUCT USED FOR UNKNOWN INDICATION

REACTIONS (9)
  - Hyponatraemia [Unknown]
  - Circulatory collapse [Fatal]
  - Megacolon [Fatal]
  - Hyperlactacidaemia [Unknown]
  - Septic shock [Fatal]
  - Acute kidney injury [Unknown]
  - Ketoacidosis [Unknown]
  - Dyspnoea [Fatal]
  - Delirium [Unknown]

NARRATIVE: CASE EVENT DATE: 20181106
